FAERS Safety Report 21838473 (Version 1)
Quarter: 2023Q1

REPORT INFORMATION
  Report Type: Spontaneous
  Country: US (occurrence: US)
  Receive Date: 20230109
  Receipt Date: 20230109
  Transmission Date: 20230418
  Serious: Yes (Life-Threatening)
  Sender: FDA-Public Use
  Company Number: US-AMNEAL PHARMACEUTICALS-2022-AMRX-04291

PATIENT
  Age: 23 Year
  Sex: Male

DRUGS (3)
  1. DEXTROMETHORPHAN HYDROBROMIDE [Suspect]
     Active Substance: DEXTROMETHORPHAN HYDROBROMIDE
     Indication: Substance abuse
     Dosage: 800-1000MG
     Route: 065
  2. BUPROPION [Suspect]
     Active Substance: BUPROPION
     Indication: Substance abuse
     Dosage: 300 MG
     Route: 065
  3. TRAZODONE [Suspect]
     Active Substance: TRAZODONE HYDROCHLORIDE
     Indication: Substance abuse
     Dosage: 100MG
     Route: 065

REACTIONS (3)
  - Intentional overdose [Unknown]
  - Suicide attempt [Unknown]
  - Serotonin syndrome [Unknown]
